FAERS Safety Report 25050836 (Version 1)
Quarter: 2025Q1

REPORT INFORMATION
  Report Type: Spontaneous
  Country: US (occurrence: None)
  Receive Date: 20250304
  Receipt Date: 20250304
  Transmission Date: 20250409
  Serious: Yes (Other)
  Sender: FDA-CTU
  Company Number: None

PATIENT
  Age: 37 Year
  Sex: Female

DRUGS (1)
  1. VIVITROL [Suspect]
     Active Substance: NALTREXONE
     Dosage: FREQUENCY : MONTHLY;?OTHER ROUTE : VG;?
     Route: 050
     Dates: start: 20250124

REACTIONS (1)
  - Nausea [None]

NARRATIVE: CASE EVENT DATE: 20250124
